FAERS Safety Report 8244951-9 (Version None)
Quarter: 2012Q1

REPORT INFORMATION
  Report Type: 
  Country: None (occurrence: None)
  Receive Date: 20120329
  Receipt Date: 20111007
  Transmission Date: 20120608
  Serious: No
  Sender: FDA-Public Use
  Company Number: US-MYLANLABS-2011S1021172

PATIENT
  Age: 48 Year
  Sex: Female

DRUGS (5)
  1. FENTANYL-100 [Suspect]
     Indication: PAIN
     Dosage: CHANGED Q48H
     Route: 062
     Dates: start: 20090101
  2. ATELVIA [Suspect]
     Indication: OSTEOPOROSIS
     Route: 048
     Dates: start: 20111001
  3. MILK THISTLE [Concomitant]
     Indication: HEPATIC FUNCTION ABNORMAL
  4. CYMBALTA [Concomitant]
     Indication: DEPRESSION
  5. ASKINA DERM FILM DRESSING [Suspect]
     Dosage: CHANGED Q48H
     Route: 062
     Dates: start: 20111001

REACTIONS (3)
  - APPLICATION SITE PRURITUS [None]
  - APPLICATION SITE ERYTHEMA [None]
  - PRURITUS GENERALISED [None]
